FAERS Safety Report 17085466 (Version 1)
Quarter: 2019Q4

REPORT INFORMATION
  Report Type: Spontaneous
  Country: US (occurrence: US)
  Receive Date: 20191127
  Receipt Date: 20191127
  Transmission Date: 20200122
  Serious: No
  Sender: FDA-Public Use
  Company Number: None

PATIENT
  Age: 55 Year
  Sex: Female

DRUGS (2)
  1. CEFTRIAXONE. [Suspect]
     Active Substance: CEFTRIAXONE
     Indication: CELLULITIS
     Route: 042
     Dates: start: 20191102, end: 20191124
  2. CEFTRIAXONE. [Suspect]
     Active Substance: CEFTRIAXONE
     Indication: CELLULITIS
     Route: 042
     Dates: start: 20191102, end: 20191124

REACTIONS (2)
  - Infusion site pruritus [None]
  - Infusion site rash [None]

NARRATIVE: CASE EVENT DATE: 20191124
